FAERS Safety Report 22522343 (Version 4)
Quarter: 2023Q4

REPORT INFORMATION
  Report Type: Report from Study
  Country: CO (occurrence: CO)
  Receive Date: 20230605
  Receipt Date: 20231114
  Transmission Date: 20240109
  Serious: Yes (Other)
  Sender: FDA-Public Use
  Company Number: CO-002147023-NVSC2022CO190352

PATIENT
  Sex: Female

DRUGS (1)
  1. COSENTYX [Suspect]
     Active Substance: SECUKINUMAB
     Indication: Psoriatic arthropathy
     Dosage: 300 MG, QMO
     Route: 058

REACTIONS (12)
  - Hypothyroidism [Unknown]
  - Psoriatic arthropathy [Unknown]
  - Feeling of despair [Unknown]
  - Insomnia [Unknown]
  - Burning sensation [Unknown]
  - Erythema [Unknown]
  - Urinary tract infection [Unknown]
  - Psoriasis [Unknown]
  - Pruritus [Unknown]
  - Alopecia [Unknown]
  - Scratch [Unknown]
  - Product distribution issue [Unknown]
